FAERS Safety Report 4978382-1 (Version None)
Quarter: 2006Q2

REPORT INFORMATION
  Report Type: 
  Country: None (occurrence: None)
  Receive Date: 20060417
  Receipt Date: 20060405
  Transmission Date: 20061013
  Serious: Yes (Hospitalization, Other)
  Sender: FDA-Public Use
  Company Number: HQWYE777911APR06

PATIENT
  Age: 40 Year
  Sex: Female

DRUGS (4)
  1. RAPAMUNE [Suspect]
     Indication: PROPHYLAXIS AGAINST TRANSPLANT REJECTION
     Dosage: 3 MG 1X PER 1 DAY ORAL
     Route: 048
     Dates: start: 20031202
  2. ENALAPRIL MALEATE [Concomitant]
  3. PREDNISONE TAB [Concomitant]
  4. AZATHIOPRINE [Concomitant]

REACTIONS (2)
  - DIARRHOEA [None]
  - VOMITING [None]
